FAERS Safety Report 5062654-9 (Version None)
Quarter: 2006Q3

REPORT INFORMATION
  Report Type: 
  Country: None (occurrence: None)
  Receive Date: 20060721
  Receipt Date: 20060707
  Transmission Date: 20061208
  Serious: Yes (Other)
  Sender: FDA-Public Use
  Company Number: 2006S1000129

PATIENT
  Age: 74 Year
  Sex: Female

DRUGS (6)
  1. CUBICIN [Suspect]
     Indication: BACTERAEMIA
     Dates: start: 20051012, end: 20051111
  2. CUBICIN [Suspect]
     Indication: STAPHYLOCOCCAL INFECTION
     Dates: start: 20051012, end: 20051111
  3. VANCOMYCIN [Concomitant]
  4. METRONIDAZOLE [Concomitant]
  5. LEVOFLOXACIN [Concomitant]
  6. AZTREONAM [Concomitant]

REACTIONS (4)
  - ENTEROBACTER INFECTION [None]
  - ESCHERICHIA INFECTION [None]
  - SPUTUM CULTURE POSITIVE [None]
  - STENOTROPHOMONAS INFECTION [None]
